FAERS Safety Report 7409987-6 (Version None)
Quarter: 2011Q2

REPORT INFORMATION
  Report Type: 
  Country: None (occurrence: None)
  Receive Date: 20110412
  Receipt Date: 20110406
  Transmission Date: 20111010
  Serious: Yes (Other)
  Sender: FDA-Public Use
  Company Number: GB-PFIZER INC-2011075874

PATIENT
  Age: 78 Year
  Sex: Female

DRUGS (1)
  1. NEURONTIN [Suspect]
     Indication: PHANTOM PAIN
     Dosage: 600 MG, 3X/DAY
     Dates: start: 20030101

REACTIONS (2)
  - MUSCLE SPASMS [None]
  - PAIN [None]
